FAERS Safety Report 17668601 (Version 1)
Quarter: 2020Q2

REPORT INFORMATION
  Report Type: Spontaneous
  Country: US (occurrence: US)
  Receive Date: 20200415
  Receipt Date: 20200415
  Transmission Date: 20200713
  Serious: No
  Sender: FDA-Public Use
  Company Number: US-GLAXOSMITHKLINE-US2020AMR064573

PATIENT
  Age: 83 Year
  Sex: Female

DRUGS (2)
  1. ALBUTEROL SULFATE INHALATION POWDER [Suspect]
     Active Substance: ALBUTEROL SULFATE
     Indication: MULTIPLE ALLERGIES
  2. ALBUTEROL SULFATE INHALATION POWDER [Suspect]
     Active Substance: ALBUTEROL SULFATE
     Indication: WHEEZING
     Dosage: UNK 1-2 PUFFS EVERY 4-6 HRS AS NEEDED
     Route: 065
     Dates: start: 2019

REACTIONS (4)
  - Off label use [Unknown]
  - Wrong technique in device usage process [Unknown]
  - Product storage error [Unknown]
  - Product use in unapproved indication [Unknown]
